FAERS Safety Report 7737168-5 (Version None)
Quarter: 2011Q3

REPORT INFORMATION
  Report Type: 
  Country: None (occurrence: None)
  Receive Date: 20110908
  Receipt Date: 20110801
  Transmission Date: 20111222
  Serious: No
  Sender: FDA-Public Use
  Company Number: US-BAYER-2011-068394

PATIENT
  Age: 47 Year
  Sex: Female
  Weight: 68 kg

DRUGS (3)
  1. ALEVE (CAPLET) [Suspect]
     Indication: DYSMENORRHOEA
     Dosage: 1 DF, ONCE
     Route: 048
     Dates: start: 20110729, end: 20110729
  2. ANTIHYPERTENSIVES [Concomitant]
  3. GLUCOPHAGE [Concomitant]

REACTIONS (9)
  - DIZZINESS [None]
  - DYSPEPSIA [None]
  - FLATULENCE [None]
  - PALPITATIONS [None]
  - NAUSEA [None]
  - VOMITING [None]
  - DIARRHOEA [None]
  - RASH [None]
  - DYSPNOEA [None]
